FAERS Safety Report 14962000 (Version 2)
Quarter: 2018Q2

REPORT INFORMATION
  Report Type: Spontaneous
  Country: US (occurrence: US)
  Receive Date: 20180601
  Receipt Date: 20180625
  Transmission Date: 20180711
  Serious: No
  Sender: FDA-Public Use
  Company Number: US-AMGEN-USASP2018073883

PATIENT
  Age: 46 Year
  Sex: Male
  Weight: 52.97 kg

DRUGS (1)
  1. ENBREL [Suspect]
     Active Substance: ETANERCEPT
     Indication: RHEUMATOID ARTHRITIS
     Dosage: 50 MG, QWK
     Route: 065
     Dates: start: 20171220

REACTIONS (3)
  - Adverse reaction [Unknown]
  - Accidental exposure to product [Unknown]
  - Drug dose omission [Unknown]

NARRATIVE: CASE EVENT DATE: 201804
